FAERS Safety Report 16936891 (Version 1)
Quarter: 2019Q4

REPORT INFORMATION
  Report Type: Spontaneous
  Country: GB (occurrence: GB)
  Receive Date: 20191018
  Receipt Date: 20191018
  Transmission Date: 20200122
  Serious: Yes (Disabling)
  Sender: FDA-Public Use
  Company Number: GB-BAUSCH-BL-2019-057962

PATIENT
  Age: 49 Year
  Sex: Female
  Weight: 59 kg

DRUGS (2)
  1. CLOPIDOGREL [Concomitant]
     Active Substance: CLOPIDOGREL BISULFATE
     Indication: PRODUCT USED FOR UNKNOWN INDICATION
  2. VENLAFAXINE HYDROCHLORIDE. [Suspect]
     Active Substance: VENLAFAXINE HYDROCHLORIDE
     Indication: MENOPAUSE
     Route: 048
     Dates: start: 20190526, end: 20190527

REACTIONS (7)
  - Headache [Recovering/Resolving]
  - Panic attack [Recovered/Resolved with Sequelae]
  - Skin reaction [Recovered/Resolved with Sequelae]
  - Nausea [Recovering/Resolving]
  - Vomiting [Recovering/Resolving]
  - Anxiety [Recovered/Resolved with Sequelae]
  - Dry mouth [Recovering/Resolving]

NARRATIVE: CASE EVENT DATE: 20190926
